FAERS Safety Report 4892912-X (Version None)
Quarter: 2006Q1

REPORT INFORMATION
  Report Type: 
  Country: None (occurrence: None)
  Receive Date: 20060126
  Receipt Date: 20060119
  Transmission Date: 20060701
  Serious: Yes (Hospitalization)
  Sender: FDA-Public Use
  Company Number: FR-MERCK-0601FRA00070

PATIENT
  Age: 72 Year
  Sex: Male

DRUGS (21)
  1. COZAAR [Suspect]
     Indication: HYPERTENSION
     Route: 048
     Dates: end: 20051102
  2. CIPROFLOXACIN HYDROCHLORIDE [Suspect]
     Indication: PNEUMONIA HAEMOPHILUS
     Route: 048
     Dates: start: 20051020, end: 20051022
  3. GENTAMICIN SULFATE [Suspect]
     Indication: PNEUMONIA HAEMOPHILUS
     Route: 030
     Dates: start: 20051022, end: 20051026
  4. PIPERACILLIN SODIUM AND TAZOBACTAM SODIUM [Suspect]
     Indication: PNEUMONIA HAEMOPHILUS
     Route: 041
     Dates: start: 20051020, end: 20051102
  5. TERBUTALINE SULFATE [Suspect]
     Indication: BRONCHITIS CHRONIC
     Route: 055
     Dates: start: 20051020, end: 20051102
  6. IPRATROPIUM BROMIDE [Suspect]
     Indication: BRONCHITIS CHRONIC
     Route: 055
     Dates: start: 20051020, end: 20051102
  7. METHYLPREDNISOLONE SODIUM SUCCINATE [Concomitant]
     Route: 065
  8. ACETYLCYSTEINE [Concomitant]
     Route: 048
  9. FUROSEMIDE [Concomitant]
     Route: 065
  10. METOCLOPRAMIDE HYDROCHLORIDE [Concomitant]
     Route: 065
  11. FLUCONAZOLE [Concomitant]
     Route: 065
  12. AMIODARONE HYDROCHLORIDE [Concomitant]
     Route: 048
  13. CLOPIDOGREL BISULFATE [Concomitant]
     Route: 048
  14. NITROGLYCERIN [Concomitant]
     Route: 061
  15. PRAVASTATIN SODIUM [Concomitant]
     Route: 048
  16. CALCIUM CARBONATE AND CHOLECALCIFEROL [Concomitant]
     Route: 048
  17. OMEPRAZOLE SODIUM [Concomitant]
     Route: 048
  18. ZOLPIDEM TARTRATE [Concomitant]
     Route: 048
  19. ACETAMINOPHEN AND PROPOXYPHENE HYDROCHLORIDE [Concomitant]
     Route: 048
  20. MEBEVERINE HYDROCHLORIDE [Concomitant]
     Route: 048
  21. PHLOROGLUCINOL AND TRIMETHYLPHLOROGLUCINOL [Concomitant]
     Route: 048

REACTIONS (2)
  - PNEUMONIA [None]
  - RENAL FAILURE ACUTE [None]
